FAERS Safety Report 8887579 (Version 1)
Quarter: 2012Q4

REPORT INFORMATION
  Report Type: Spontaneous
  Country: US (occurrence: None)
  Receive Date: 20121106
  Receipt Date: 20121106
  Transmission Date: 20130627
  Serious: Yes (Hospitalization)
  Sender: FDA-Public Use
  Company Number: None

PATIENT
  Sex: Male
  Weight: 95.26 kg

DRUGS (1)
  1. METHYLPREDNISOLONE [Suspect]

REACTIONS (5)
  - Headache [None]
  - Dysarthria [None]
  - Catatonia [None]
  - Dizziness [None]
  - Amnesia [None]
